FAERS Safety Report 23074148 (Version 2)
Quarter: 2023Q4

REPORT INFORMATION
  Report Type: Report from Study
  Country: CA (occurrence: CA)
  Receive Date: 20231017
  Receipt Date: 20231106
  Transmission Date: 20240110
  Serious: Yes (Other)
  Sender: FDA-Public Use
  Company Number: CA-PFIZER INC-202300318284

PATIENT
  Age: 36 Year
  Sex: Female

DRUGS (13)
  1. ADALIMUMAB [Suspect]
     Active Substance: ADALIMUMAB\ISOPROPYL ALCOHOL
     Indication: Ankylosing spondylitis
     Dosage: 40 MG, WEEKLY
     Route: 065
  2. CETIRIZINE [Concomitant]
     Active Substance: CETIRIZINE HYDROCHLORIDE
     Route: 065
  3. CYANOCOBALAMIN [Concomitant]
     Active Substance: CYANOCOBALAMIN
     Route: 065
  4. INDOMETHACIN [Concomitant]
     Active Substance: INDOMETHACIN
     Route: 065
  5. IRON [Concomitant]
     Active Substance: IRON
     Route: 065
  6. IRON [Concomitant]
     Active Substance: IRON
     Dosage: UNK, AS REQUIRED
     Route: 065
  7. JENCYCLA [Concomitant]
     Active Substance: NORETHINDRONE
     Route: 065
  8. NIFEDIPINE [Concomitant]
     Active Substance: NIFEDIPINE
     Route: 065
  9. PANTOPRAZOLE [Concomitant]
     Active Substance: PANTOPRAZOLE
     Route: 065
  10. PANTOPRAZOLE [Concomitant]
     Active Substance: PANTOPRAZOLE
     Dosage: 40.0 MG
     Route: 065
  11. SEMAGLUTIDE [Concomitant]
     Active Substance: SEMAGLUTIDE
     Route: 065
  12. VITAMIN D NOS [Concomitant]
     Active Substance: VITAMIN D NOS
     Route: 065
  13. VITAMIN D NOS [Concomitant]
     Active Substance: VITAMIN D NOS
     Dosage: 1 EVERY 6 MONTHS
     Route: 065

REACTIONS (4)
  - Breast abscess [Not Recovered/Not Resolved]
  - Breast mass [Not Recovered/Not Resolved]
  - Ankylosing spondylitis [Not Recovered/Not Resolved]
  - Product use issue [Not Recovered/Not Resolved]
